FAERS Safety Report 6988567-0 (Version None)
Quarter: 2010Q3

REPORT INFORMATION
  Report Type: 
  Country: None (occurrence: None)
  Receive Date: 20100914
  Receipt Date: 20100901
  Transmission Date: 20110219
  Serious: Yes (Disabling)
  Sender: FDA-Public Use
  Company Number: 675723

PATIENT
  Sex: Male

DRUGS (10)
  1. VANCOMYCIN HCL [Suspect]
     Indication: STAPHYLOCOCCAL ABSCESS
     Dosage: EVERY 24 HOURS, INTRAVENOUS
     Route: 042
     Dates: start: 20070204, end: 20070309
  2. VANCOMYCIN HYDROCHLORIDE [Suspect]
     Indication: STAPHYLOCOCCAL ABSCESS
     Dosage: EVERY 24 HOURS, INTRAVENOUS
     Route: 042
     Dates: start: 20070216, end: 20070216
  3. VANCOMYCIN HYDROCHLORIDE [Suspect]
     Route: 042
  4. VANCOMYCIN HYDROCHLORIDE [Suspect]
     Indication: STAPHYLOCOCCAL ABSCESS
     Dosage: EVERY 24 HOURS, INTRAVENOUS
     Route: 042
     Dates: start: 20070216, end: 20070216
  5. VANCOMYCIN HYDROCHLORIDE [Suspect]
     Indication: STAPHYLOCOCCAL ABSCESS
     Dosage: EVERY 24 HOURS, INTRAVENOUS
     Route: 042
     Dates: start: 20070228, end: 20070228
  6. VANCOMYCIN HYDROCHLORIDE [Suspect]
     Indication: STAPHYLOCOCCAL ABSCESS
     Dosage: EVERY 24 HOURS, INTRAVENOUS
     Route: 042
     Dates: start: 20070307, end: 20070307
  7. VANCOMYCIN HYDROCHLORIDE [Suspect]
     Indication: STAPHYLOCOCCAL ABSCESS
     Dosage: EVERY 24 HOURS, INTRAVENOUS
     Route: 042
     Dates: start: 20070221, end: 20070221
  8. VANCOMYCIN HYDROCHLORIDE [Suspect]
     Indication: STAPHYLOCOCCAL ABSCESS
     Dosage: EVERY 24 HOURS, INTRAVENOUS
     Route: 042
     Dates: start: 20070221, end: 20070221
  9. SODIUM CHLORIDE [Concomitant]
  10. HEPARIN [Concomitant]

REACTIONS (7)
  - BALANCE DISORDER [None]
  - DEAFNESS NEUROSENSORY [None]
  - DEAFNESS UNILATERAL [None]
  - HEMIPLEGIA [None]
  - HYPOACUSIS [None]
  - OTOTOXICITY [None]
  - VERTIGO [None]
